FAERS Safety Report 11433497 (Version 1)
Quarter: 2015Q3

REPORT INFORMATION
  Report Type: Spontaneous
  Country: GB (occurrence: None)
  Receive Date: 20150827
  Receipt Date: 20150827
  Transmission Date: 20151125
  Serious: Yes (Life-Threatening)
  Sender: FDA-Public Use
  Company Number: NL01PV15_39476

PATIENT
  Age: 55 Year
  Sex: Male
  Weight: 120 kg

DRUGS (17)
  1. UNKNOWN (TAMSULOSIN) UNKNOWN [Suspect]
     Active Substance: TAMSULOSIN
     Indication: BENIGN PROSTATIC HYPERPLASIA
     Route: 048
     Dates: start: 20150808, end: 20150809
  2. CLOPIDOGREL /01220706/ (CLOPIDOGREL HYDROBROMIDE) [Concomitant]
  3. GLYCERYL TRINITRATE (GLYCERYL TRINITRATE) [Concomitant]
     Active Substance: NITROGLYCERIN
  4. ATORVASTATIN (ATORVASTATIN) [Concomitant]
     Active Substance: ATORVASTATIN
  5. GABAPENTIN (GABAPENTIN) [Concomitant]
     Active Substance: GABAPENTIN
  6. OMEPRAZOLE (OMEPRAZOLE) [Concomitant]
     Active Substance: OMEPRAZOLE
  7. PARACETAMOL (PARACETAMOL) [Concomitant]
     Active Substance: ACETAMINOPHEN
  8. DALTEPARIN (DALTEPARIN) [Concomitant]
  9. ISOSORBIDE MONONITRATE (ISOSORBIDE MONONITRATE) [Concomitant]
     Active Substance: ISOSORBIDE MONONITRATE
  10. ONDANSETRON HYDROCHLORIDE (ONDANSETRON HYDROCHLORIDE) [Concomitant]
     Active Substance: ONDANSETRON HYDROCHLORIDE
  11. DIHYDROCODEINE (DIPHYDROCODEINE) [Concomitant]
  12. MACROGOL 3350 (MACROGOL 3350) [Concomitant]
  13. ASPIRIN /00002701/ (ACETYLSALICYLIC ACID) [Concomitant]
  14. GLYCERIN /00200601/ (GLYCEROL) [Concomitant]
  15. LACTULOSE (LACTULOSE) [Concomitant]
     Active Substance: LACTULOSE
  16. ORAMORPH (MORPHINE SULFATE PENTAHYDRATE) [Concomitant]
  17. SENNA /00142201/ (SENNA ALEXANDRINA) [Concomitant]

REACTIONS (1)
  - Anaphylactic reaction [None]

NARRATIVE: CASE EVENT DATE: 20150809
